FAERS Safety Report 5444246-2 (Version None)
Quarter: 2007Q3

REPORT INFORMATION
  Report Type: 
  Country: None (occurrence: None)
  Receive Date: 20070904
  Receipt Date: 20070904
  Transmission Date: 20080115
  Serious: Yes (Death)
  Sender: FDA-Public Use
  Company Number: None

PATIENT
  Age: 78 Year
  Sex: Male
  Weight: 77.1115 kg

DRUGS (1)
  1. PROTAMINE SULFATE [Suspect]
     Indication: HAEMORRHAGE
     Dosage: 25 MG  ONE TIME  IV
     Route: 042
     Dates: start: 20070403, end: 20070403

REACTIONS (1)
  - CARDIO-RESPIRATORY ARREST [None]
